FAERS Safety Report 17420117 (Version 7)
Quarter: 2022Q3

REPORT INFORMATION
  Report Type: Report from Study
  Country: US (occurrence: US)
  Receive Date: 20200214
  Receipt Date: 20220909
  Transmission Date: 20221027
  Serious: Yes (Hospitalization, Other)
  Sender: FDA-Public Use
  Company Number: US-SHIRE-US202005813

PATIENT
  Sex: Male
  Weight: 102 kg

DRUGS (14)
  1. HUMAN IMMUNOGLOBULIN G [Suspect]
     Active Substance: HUMAN IMMUNOGLOBULIN G
     Indication: Immunodeficiency common variable
     Dosage: 17 GRAM, 1/WEEK
     Route: 058
     Dates: start: 20180320
  2. HUMAN IMMUNOGLOBULIN G [Suspect]
     Active Substance: HUMAN IMMUNOGLOBULIN G
     Dosage: 15 GRAM, 1/WEEK
     Route: 058
     Dates: start: 20180320
  3. HUMAN IMMUNOGLOBULIN G [Suspect]
     Active Substance: HUMAN IMMUNOGLOBULIN G
     Dosage: 15 GRAM, 1/WEEK
     Route: 058
     Dates: start: 20180416
  4. DIPHENHYDRAMINE [Concomitant]
     Active Substance: DIPHENHYDRAMINE
     Indication: Product used for unknown indication
     Route: 065
  5. ALBUTEROL SULFATE [Concomitant]
     Active Substance: ALBUTEROL SULFATE
     Indication: Product used for unknown indication
     Dosage: UNK
     Route: 065
  6. EPINEPHRINE [Concomitant]
     Active Substance: EPINEPHRINE
     Indication: Product used for unknown indication
     Dosage: UNK
     Route: 065
  7. AZITHROMYCIN [Concomitant]
     Active Substance: AZITHROMYCIN
     Indication: Product used for unknown indication
     Dosage: UNK
     Route: 065
  8. ERYTHROMYCIN [Concomitant]
     Active Substance: ERYTHROMYCIN
     Indication: Product used for unknown indication
     Dosage: UNK
     Route: 065
  9. VITAMIN D3 [Concomitant]
     Active Substance: CHOLECALCIFEROL
     Route: 065
  10. AMOXICILLIN [Concomitant]
     Active Substance: AMOXICILLIN
     Indication: Streptobacillus infection
     Route: 065
  11. ACETAMINOPHEN [Concomitant]
     Active Substance: ACETAMINOPHEN
     Indication: Product used for unknown indication
     Route: 065
  12. VITAMIN C [Concomitant]
     Active Substance: ASCORBIC ACID
     Route: 065
  13. FLOVENT [Concomitant]
     Active Substance: FLUTICASONE PROPIONATE
     Indication: Product used for unknown indication
     Dosage: UNK
     Route: 065
  14. LIDOCAINE [Concomitant]
     Active Substance: LIDOCAINE
     Indication: Product used for unknown indication
     Route: 065

REACTIONS (8)
  - Oxygen saturation decreased [Unknown]
  - COVID-19 pneumonia [Unknown]
  - Infection [Unknown]
  - Abnormal behaviour [Unknown]
  - Illness [Unknown]
  - Pharyngitis streptococcal [Unknown]
  - Intentional dose omission [Unknown]
  - COVID-19 [Unknown]
